FAERS Safety Report 14184140 (Version 1)
Quarter: 2017Q4

REPORT INFORMATION
  Report Type: Spontaneous
  Country: RU (occurrence: RU)
  Receive Date: 20171113
  Receipt Date: 20171113
  Transmission Date: 20180321
  Serious: Yes (Other)
  Sender: FDA-Public Use
  Company Number: RU-BAYER-2017-213875

PATIENT
  Age: 36 Year
  Sex: Female

DRUGS (2)
  1. MIRENA [Suspect]
     Active Substance: LEVONORGESTREL
     Indication: ENDOMETRIOSIS
  2. MIRENA [Suspect]
     Active Substance: LEVONORGESTREL
     Indication: OVARIAN RUPTURE
     Dosage: 20 MCG/24HR, CONT
     Route: 015

REACTIONS (12)
  - Device use issue [None]
  - Anaemia [None]
  - Pyrexia [None]
  - Abdominal pain lower [None]
  - Premature ovulation [None]
  - Gait disturbance [None]
  - Chills [None]
  - Vein disorder [None]
  - Off label use of device [None]
  - Procedural pain [None]
  - Ovarian rupture [None]
  - Abdominal distension [None]
